FAERS Safety Report 7049662-3 (Version None)
Quarter: 2010Q4

REPORT INFORMATION
  Report Type: 
  Country: None (occurrence: None)
  Receive Date: 20101018
  Receipt Date: 20101012
  Transmission Date: 20110411
  Serious: Yes (Disabling, Other)
  Sender: FDA-Public Use
  Company Number: A0886128A

PATIENT
  Age: 76 Year
  Sex: Male

DRUGS (4)
  1. VENTOLIN [Suspect]
     Indication: PRODUCT USED FOR UNKNOWN INDICATION
     Route: 065
  2. DIALYSIS [Suspect]
  3. SYNTHROID [Concomitant]
  4. DIOVAN [Concomitant]

REACTIONS (2)
  - GOUT [None]
  - PAIN [None]
